FAERS Safety Report 7235409-4 (Version None)
Quarter: 2011Q1

REPORT INFORMATION
  Report Type: 
  Country: None (occurrence: None)
  Receive Date: 20110114
  Receipt Date: 20110114
  Transmission Date: 20110831
  Serious: Yes (Death, Life-Threatening, Hospitalization)
  Sender: FDA-Public Use
  Company Number: None

PATIENT
  Sex: Female
  Weight: 89.2 kg

DRUGS (14)
  1. CEFEPIME [Concomitant]
  2. FLAGYL [Concomitant]
  3. MICAFUNGIN [Concomitant]
  4. LEVAQUIN [Concomitant]
  5. BACTRIM [Concomitant]
  6. CARAFATE [Concomitant]
  7. URSODIOL [Concomitant]
  8. ZOLOFT [Concomitant]
  9. ACYCLOVIR [Concomitant]
  10. CLOFARABINE 1MG/ML - GENZYME [Suspect]
     Indication: ACUTE MYELOID LEUKAEMIA RECURRENT
     Dosage: 40MG/M2/DAY
     Dates: start: 20101120, end: 20101124
  11. NEXIUM [Concomitant]
  12. FILGASTRIM [Concomitant]
  13. REGLAN [Concomitant]
  14. VORICONAZOLE [Concomitant]

REACTIONS (14)
  - MULTI-ORGAN FAILURE [None]
  - RENAL FAILURE [None]
  - PYREXIA [None]
  - BONE MARROW FAILURE [None]
  - RESPIRATORY DISTRESS [None]
  - TACHYCARDIA [None]
  - FLUID OVERLOAD [None]
  - CEREBRAL DISORDER [None]
  - VOMITING [None]
  - ASTHENIA [None]
  - CARDIAC FAILURE [None]
  - CANDIDIASIS [None]
  - BLOOD CULTURE POSITIVE [None]
  - RESPIRATORY FAILURE [None]
